FAERS Safety Report 5333968-X (Version None)
Quarter: 2007Q2

REPORT INFORMATION
  Report Type: 
  Country: None (occurrence: None)
  Receive Date: 20070524
  Receipt Date: 20070514
  Transmission Date: 20071010
  Serious: Yes (Other)
  Sender: FDA-Public Use
  Company Number: CA-PFIZER INC-2007027055

PATIENT
  Sex: Female
  Weight: 88.9 kg

DRUGS (10)
  1. LATANOPROST [Suspect]
     Indication: GLAUCOMA
     Route: 047
     Dates: start: 20060201, end: 20070321
  2. NAPROXEN [Suspect]
     Route: 048
  3. ADVIL [Concomitant]
     Route: 048
  4. ALL OTHER THERAPEUTIC PRODUCTS [Concomitant]
     Indication: EPILEPSY
     Dosage: DAILY DOSE:250MG
     Route: 048
  5. ASCORBIC ACID [Concomitant]
     Dosage: DAILY DOSE:1000CC
     Route: 048
  6. LEVOTHYROXINE SODIUM [Concomitant]
     Indication: THYROID DISORDER
     Dosage: DAILY DOSE:.1MG
     Route: 048
  7. OMEGA [Concomitant]
     Route: 048
  8. VITAMIN CAP [Concomitant]
     Route: 048
  9. THYME [Concomitant]
     Indication: COUGH
     Route: 048
  10. GRAVOL TAB [Concomitant]
     Indication: INSOMNIA
     Dosage: DAILY DOSE:25MG
     Route: 048

REACTIONS (5)
  - ASTHMA [None]
  - COUGH [None]
  - DIAPHRAGMATIC INJURY [None]
  - INTRAOCULAR PRESSURE INCREASED [None]
  - LUNG DISORDER [None]
